FAERS Safety Report 6743915-1 (Version None)
Quarter: 2010Q2

REPORT INFORMATION
  Report Type: 
  Country: None (occurrence: None)
  Receive Date: 20100527
  Receipt Date: 20100518
  Transmission Date: 20101027
  Serious: Yes (Hospitalization)
  Sender: FDA-Public Use
  Company Number: US-ELI_LILLY_AND_COMPANY-US201004004312

PATIENT
  Sex: Male
  Weight: 83.447 kg

DRUGS (22)
  1. PEMETREXED [Suspect]
     Indication: NON-SMALL CELL LUNG CANCER
     Dosage: 500 MG/M2, OTHER
     Route: 042
     Dates: start: 20100217
  2. CARBOPLATIN [Suspect]
     Indication: NON-SMALL CELL LUNG CANCER
     Dosage: 6 D/F, OTHER
     Route: 042
     Dates: start: 20100217
  3. BEVACIZUMAB [Suspect]
     Indication: NON-SMALL CELL LUNG CANCER
     Dosage: 15 MG/KG, OTHER
     Route: 042
     Dates: start: 20100217
  4. MORPHINE [Concomitant]
     Indication: PAIN
     Dates: start: 20100220
  5. OXYCONTIN [Concomitant]
     Indication: PAIN
     Dates: start: 20100223
  6. AMBIEN [Concomitant]
     Indication: INSOMNIA
     Dates: start: 20100119
  7. LEXAPRO [Concomitant]
     Indication: DEPRESSION
     Dates: start: 20100311
  8. LACTULOSE [Concomitant]
     Dates: start: 20100309
  9. EX-LAX [Concomitant]
     Indication: CONSTIPATION
     Dates: start: 20100311
  10. SENOKOT [Concomitant]
     Indication: CONSTIPATION
     Dates: start: 20100311
  11. DULCOLAX [Concomitant]
     Indication: CONSTIPATION
     Dates: start: 20100317
  12. MEGACE [Concomitant]
     Indication: DECREASED APPETITE
     Dates: start: 20100317
  13. LISINOPRIL [Concomitant]
     Indication: HYPERTENSION
     Dates: start: 20100122
  14. MUCINEX [Concomitant]
     Indication: NASAL CONGESTION
     Dates: start: 20100122
  15. NEXIUM [Concomitant]
     Indication: GASTROOESOPHAGEAL REFLUX DISEASE
     Dates: start: 20100122
  16. IPRATROPIUM [Concomitant]
     Indication: DYSPNOEA
     Dates: start: 20100122
  17. BUDESONIDE [Concomitant]
     Indication: DYSPNOEA
     Dates: start: 20100122
  18. TYLENOL                                 /SCH/ [Concomitant]
     Indication: PAIN
     Dates: start: 20100122
  19. LORTAB [Concomitant]
     Indication: PAIN
     Dates: start: 20100214
  20. RESTORIL [Concomitant]
     Indication: INSOMNIA
     Dates: start: 20100120
  21. FLOMAX [Concomitant]
     Indication: BENIGN PROSTATIC HYPERPLASIA
     Dates: start: 20100213
  22. LORAZEPAM [Concomitant]
     Dates: start: 20100122

REACTIONS (1)
  - NON-CARDIAC CHEST PAIN [None]
